FAERS Safety Report 9997672 (Version 2)
Quarter: 2014Q2

REPORT INFORMATION
  Report Type: Spontaneous
  Country: US (occurrence: US)
  Receive Date: 20140311
  Receipt Date: 20140422
  Transmission Date: 20141212
  Serious: No
  Sender: FDA-Public Use
  Company Number: US-PFIZER INC-2014067422

PATIENT
  Age: 67 Year
  Sex: Male

DRUGS (1)
  1. SUTENT [Suspect]
     Indication: RENAL CANCER
     Dosage: 37.5 MG, CYCLIC, ONCE DAILY 3 WKS ON, 1 OFF
     Route: 048
     Dates: start: 20140110, end: 20140304

REACTIONS (2)
  - Disease progression [Unknown]
  - Renal cancer [Unknown]
